FAERS Safety Report 5049783-0 (Version None)
Quarter: 2006Q3

REPORT INFORMATION
  Report Type: 
  Country: None (occurrence: None)
  Receive Date: 20060706
  Receipt Date: 20060621
  Transmission Date: 20061208
  Serious: Yes (Hospitalization)
  Sender: FDA-Public Use
  Company Number: 2006-BP-07093RO

PATIENT
  Age: 61 Year
  Sex: Male

DRUGS (7)
  1. PREDNISONE TAB [Suspect]
     Indication: PROPHYLAXIS AGAINST TRANSPLANT REJECTION
     Dosage: 5 MG DAILY (5 MG),
  2. MYCOPHENOLATE MOFETIL [Suspect]
     Indication: PROPHYLAXIS AGAINST TRANSPLANT REJECTION
     Dosage: 1000 MG BID (1000 MG),
  3. TACROLIMUS (TACROLIMUS) [Suspect]
     Indication: PROPHYLAXIS AGAINST TRANSPLANT REJECTION
     Dosage: 2 MG BID (2 MG)
  4. MESALAMINE [Concomitant]
  5. TAMSULOSIN HCL [Concomitant]
  6. OXYBUTYNIN (OXYBUTYNIN) [Concomitant]
  7. ASPIRIN [Concomitant]

REACTIONS (12)
  - ABDOMINAL PAIN [None]
  - ABSCESS [None]
  - CHILLS [None]
  - DIARRHOEA [None]
  - HISTOPLASMOSIS [None]
  - HYPOXIA [None]
  - ILL-DEFINED DISORDER [None]
  - INFLAMMATION [None]
  - LARGE INTESTINAL ULCER [None]
  - PERICARDITIS [None]
  - PLEURAL EFFUSION [None]
  - RENAL FAILURE [None]
